FAERS Safety Report 23446175 (Version 4)
Quarter: 2024Q1

REPORT INFORMATION
  Report Type: Spontaneous
  Country: US (occurrence: US)
  Receive Date: 20240126
  Receipt Date: 20240313
  Transmission Date: 20240409
  Serious: No
  Sender: FDA-Public Use
  Company Number: US-Blueprint Medicines Corporation-SP-US-2024-000139

PATIENT
  Sex: Male

DRUGS (2)
  1. AYVAKIT [Suspect]
     Active Substance: AVAPRITINIB
     Indication: Advanced systemic mastocytosis
     Route: 048
     Dates: start: 20230822
  2. AYVAKIT [Suspect]
     Active Substance: AVAPRITINIB
     Indication: Advanced systemic mastocytosis
     Route: 065
     Dates: start: 20240122

REACTIONS (13)
  - Ageusia [Not Recovered/Not Resolved]
  - Swelling [Recovering/Resolving]
  - Rash pruritic [Not Recovered/Not Resolved]
  - Oedema [Recovering/Resolving]
  - Ocular icterus [Not Recovered/Not Resolved]
  - Amnesia [Not Recovered/Not Resolved]
  - Dysgeusia [Recovering/Resolving]
  - Seasonal allergy [Not Recovered/Not Resolved]
  - Condition aggravated [Not Recovered/Not Resolved]
  - Hypersensitivity [Not Recovered/Not Resolved]
  - Dust allergy [Not Recovered/Not Resolved]
  - Eczema [Unknown]
  - Psoriasis [Unknown]
